FAERS Safety Report 14577341 (Version 3)
Quarter: 2018Q4

REPORT INFORMATION
  Report Type: Report from Study
  Country: US (occurrence: US)
  Receive Date: 20180227
  Receipt Date: 20181228
  Transmission Date: 20190204
  Serious: No
  Sender: FDA-Public Use
  Company Number: PHEH2018US007935

PATIENT
  Sex: Female

DRUGS (1)
  1. COSENTYX [Suspect]
     Active Substance: SECUKINUMAB
     Indication: PRODUCT USED FOR UNKNOWN INDICATION
     Route: 058

REACTIONS (7)
  - Nasal congestion [Recovering/Resolving]
  - Skin exfoliation [Unknown]
  - Pain [Unknown]
  - Fatigue [Recovering/Resolving]
  - Memory impairment [Unknown]
  - Nasopharyngitis [Recovering/Resolving]
  - Psoriasis [Unknown]
